FAERS Safety Report 19468795 (Version 1)
Quarter: 2021Q2

REPORT INFORMATION
  Report Type: Report from Study
  Country: KR (occurrence: KR)
  Receive Date: 20210628
  Receipt Date: 20210628
  Transmission Date: 20210717
  Serious: Yes (Hospitalization, Other)
  Sender: FDA-Public Use
  Company Number: KR-INCYTE CORPORATION-2021IN005459

PATIENT

DRUGS (33)
  1. FEROBA U [Concomitant]
     Active Substance: FERROUS SULFATE
     Dosage: 1 DF (ST TABLET)
     Route: 065
  2. ASPIRIN. [Concomitant]
     Active Substance: ASPIRIN
     Dosage: 1 DF
     Route: 065
  3. MUTERAN [Concomitant]
     Active Substance: ACETYLCYSTEINE
     Indication: COUGH
     Dosage: UNK
     Route: 065
     Dates: start: 20190325, end: 20190423
  4. JAKAVI [Suspect]
     Active Substance: RUXOLITINIB
     Indication: PRIMARY MYELOFIBROSIS
     Dosage: 20 MG
     Route: 048
     Dates: start: 20190201
  5. RENALMIN [Concomitant]
     Indication: PRODUCT USED FOR UNKNOWN INDICATION
     Dosage: 1 DF
     Route: 065
  6. DILATREND [Concomitant]
     Active Substance: CARVEDILOL
     Indication: HYPERTENSION
     Dosage: 1 DF
     Route: 065
     Dates: start: 20170202, end: 20190701
  7. PRIVITUSS [Concomitant]
     Indication: COUGH
     Dosage: 3 DF (SUSPENSION 8ML/PACK) (3 PKG)
     Route: 065
     Dates: start: 20190325, end: 20190423
  8. TORASEMID [Concomitant]
     Active Substance: TORSEMIDE
     Dosage: 1 DF
     Route: 065
     Dates: start: 20160721
  9. TRENTAL [Concomitant]
     Active Substance: PENTOXIFYLLINE
     Indication: CEREBROVASCULAR ACCIDENT
     Dosage: 2 DF (2 TAB 2)
     Route: 065
  10. SMECTA [Concomitant]
     Active Substance: MONTMORILLONITE
     Indication: DIARRHOEA
     Dosage: 1 DF (20 ML/PKG)
     Route: 065
     Dates: start: 20190206, end: 20190301
  11. TAZIME [Concomitant]
     Active Substance: CEFTAZIDIME
     Indication: ASTHENIA
     Dosage: 1 DF (2 G INJECTION) (1 VIAL)
     Route: 065
     Dates: start: 20190409, end: 20190415
  12. OLMETEC [Concomitant]
     Active Substance: OLMESARTAN MEDOXOMIL
     Indication: HYPERTENSION
     Dosage: 1 DF
     Route: 065
     Dates: start: 20130225, end: 20190701
  13. CIPROBAY [CIPROFLOXACIN HYDROCHLORIDE;HYDROCORTISONE] [Concomitant]
     Active Substance: CIPROFLOXACIN HYDROCHLORIDE\HYDROCORTISONE
     Indication: PRODUCT USED FOR UNKNOWN INDICATION
     Dosage: 500 MG
     Route: 065
  14. ALBIS [RANITIDINE HYDROCHLORIDE;SUCRALFATE;TRIPOTASSIUM DICITRATOBISMU [Concomitant]
     Indication: CHRONIC GASTRITIS
     Dosage: 1 DF
     Route: 065
  15. LANSTON [Concomitant]
     Active Substance: LANSOPRAZOLE
     Dosage: 1 DF
     Route: 065
  16. OLMETEC [Concomitant]
     Active Substance: OLMESARTAN MEDOXOMIL
     Dosage: 1 DF
     Route: 065
  17. ACTIFED [Concomitant]
     Indication: COUGH
     Dosage: 3 DF
     Route: 005
     Dates: start: 20190325, end: 20190423
  18. ALBIS [RANITIDINE HYDROCHLORIDE;SUCRALFATE;TRIPOTASSIUM DICITRATOBISMU [Concomitant]
     Dosage: 1 DF
     Route: 065
     Dates: start: 20190910
  19. DILATREND [Concomitant]
     Active Substance: CARVEDILOL
     Dosage: 1 DF
     Route: 065
  20. TRENTAL [Concomitant]
     Active Substance: PENTOXIFYLLINE
     Dosage: 1 DF
     Route: 065
     Dates: start: 20130905
  21. ACLOVA [ACICLOVIR SODIUM] [Concomitant]
     Indication: ASTHENIA
     Dosage: 1 DF
     Route: 065
     Dates: start: 20190415, end: 20190423
  22. TORASEMID [Concomitant]
     Active Substance: TORSEMIDE
     Indication: END STAGE RENAL DISEASE
     Dosage: 100 MG
     Route: 065
  23. ZYLORIC [Concomitant]
     Active Substance: ALLOPURINOL
     Indication: PRODUCT USED FOR UNKNOWN INDICATION
     Dosage: 100 MG
     Route: 065
  24. LANSTON [Concomitant]
     Active Substance: LANSOPRAZOLE
     Indication: CHRONIC GASTRITIS
     Dosage: 1 DF
     Route: 065
     Dates: start: 20161028
  25. MEGESTROL ES [Concomitant]
     Indication: PRIMARY MYELOFIBROSIS
     Dosage: 1 DF (SUSP PACK) (1 PKG)
     Route: 065
  26. NORVASC [Concomitant]
     Active Substance: AMLODIPINE BESYLATE
     Indication: HYPERTENSION
     Dosage: 1 DF
     Route: 065
     Dates: start: 20160826, end: 20190526
  27. LIPITOR [Concomitant]
     Active Substance: ATORVASTATIN CALCIUM
     Indication: PROPHYLAXIS
     Dosage: 1 DF
     Route: 065
     Dates: start: 20190410
  28. TYLENOL [Concomitant]
     Active Substance: ACETAMINOPHEN
     Indication: HEADACHE
     Dosage: 1 DF (8 HR, ER)
     Route: 065
     Dates: start: 20190507, end: 20190507
  29. TAZIME [Concomitant]
     Active Substance: CEFTAZIDIME
     Dosage: 1 DF (1 G INJECTION) (1 VIAL)
     Route: 065
     Dates: start: 20190410, end: 20190416
  30. CIPROFLOXACIN. [Concomitant]
     Active Substance: CIPROFLOXACIN
     Indication: PRODUCT USED FOR UNKNOWN INDICATION
     Dosage: UNK
     Route: 048
  31. FEROBA U [Concomitant]
     Active Substance: FERROUS SULFATE
     Indication: ANAEMIA
     Dosage: 1 DF
     Route: 005
     Dates: start: 20160817, end: 20190606
  32. ASPIRIN. [Concomitant]
     Active Substance: ASPIRIN
     Indication: CEREBROVASCULAR ACCIDENT
     Dosage: 100 MG
     Route: 065
     Dates: start: 20080902, end: 20190606
  33. CADUET [Concomitant]
     Active Substance: AMLODIPINE BESYLATE\ATORVASTATIN CALCIUM
     Indication: CEREBROVASCULAR ACCIDENT
     Dosage: 1 DF
     Route: 065
     Dates: start: 20080902, end: 20190515

REACTIONS (12)
  - Pneumonia [Recovered/Resolved]
  - Biliary dilatation [Not Recovered/Not Resolved]
  - Hepatic mass [Unknown]
  - Hypertension [Recovering/Resolving]
  - Splenomegaly [Unknown]
  - Pleural effusion [Unknown]
  - Lymphadenopathy [Unknown]
  - Heart rate abnormal [Recovering/Resolving]
  - Liver abscess [Recovered/Resolved]
  - Cyst [Recovered/Resolved]
  - Liver disorder [Unknown]
  - Emphysema [Unknown]

NARRATIVE: CASE EVENT DATE: 20190513
